FAERS Safety Report 11837555 (Version 1)
Quarter: 2015Q4

REPORT INFORMATION
  Report Type: Spontaneous
  Country: JP (occurrence: JP)
  Receive Date: 20151215
  Receipt Date: 20151215
  Transmission Date: 20160305
  Serious: Yes (Hospitalization, Other)
  Sender: FDA-Public Use
  Company Number: JP-ELI_LILLY_AND_COMPANY-JP201510007734

PATIENT
  Age: 66 Year
  Sex: Male
  Weight: 70 kg

DRUGS (9)
  1. WARFARIN                           /00014803/ [Suspect]
     Active Substance: WARFARIN
     Dosage: 3.5 MG, QD
     Route: 048
     Dates: start: 20150713, end: 20150725
  2. BASEN                              /01290601/ [Concomitant]
     Active Substance: VOGLIBOSE
     Indication: TYPE 2 DIABETES MELLITUS
     Dosage: .3 MG, TID
     Route: 048
     Dates: end: 20150725
  3. PRASUGREL HYDROCHLORIDE [Suspect]
     Active Substance: PRASUGREL HYDROCHLORIDE
     Indication: ANGINA PECTORIS
     Dosage: 3.75 MG, QD
     Route: 048
     Dates: start: 20150611, end: 20150725
  4. CRESTOR [Concomitant]
     Active Substance: ROSUVASTATIN CALCIUM
     Indication: HYPERCHOLESTEROLAEMIA
     Dosage: 2.5 MG, QD
     Route: 048
     Dates: start: 20150611, end: 20150725
  5. JANUVIA [Concomitant]
     Active Substance: SITAGLIPTIN PHOSPHATE
     Indication: TYPE 2 DIABETES MELLITUS
     Dosage: 50 MG, QD
     Route: 048
     Dates: end: 20150725
  6. TAKELDA [Suspect]
     Active Substance: ASPIRIN\LANSOPRAZOLE
     Indication: ANGINA PECTORIS
     Dosage: UNK
     Route: 048
     Dates: start: 20150611, end: 20150725
  7. WARFARIN                           /00014803/ [Suspect]
     Active Substance: WARFARIN
     Indication: ANGINA PECTORIS
     Dosage: 4 MG, QD
     Route: 048
     Dates: start: 20150707, end: 20150708
  8. EUGLUCON [Concomitant]
     Active Substance: GLYBURIDE
     Indication: TYPE 2 DIABETES MELLITUS
     Dosage: 2.5 MG, QD
     Route: 048
     Dates: end: 20150725
  9. WARFARIN                           /00014803/ [Suspect]
     Active Substance: WARFARIN
     Dosage: 3 MG, QD
     Route: 048
     Dates: start: 20150709, end: 20150712

REACTIONS (6)
  - Hemiplegia [Unknown]
  - Anaemia [None]
  - Dysphagia [Unknown]
  - Cerebral haemorrhage [Recovered/Resolved with Sequelae]
  - Coronary artery thrombosis [None]
  - Blood pressure systolic increased [None]

NARRATIVE: CASE EVENT DATE: 20150724
